FAERS Safety Report 16057161 (Version 3)
Quarter: 2019Q2

REPORT INFORMATION
  Report Type: Report from Study
  Country: MX (occurrence: MX)
  Receive Date: 20190311
  Receipt Date: 20190423
  Transmission Date: 20190711
  Serious: Yes (Hospitalization, Other)
  Sender: FDA-Public Use
  Company Number: MX-JNJFOC-20190122012

PATIENT
  Age: 60 Year
  Sex: Female
  Weight: 47 kg

DRUGS (3)
  1. DARZALEX [Suspect]
     Active Substance: DARATUMUMAB
     Indication: PLASMA CELL MYELOMA
     Route: 042
     Dates: start: 201807
  2. DARZALEX [Suspect]
     Active Substance: DARATUMUMAB
     Indication: PLASMA CELL MYELOMA
     Route: 042
     Dates: start: 20190221
  3. CARFILZOMIB [Suspect]
     Active Substance: CARFILZOMIB
     Indication: PRODUCT USED FOR UNKNOWN INDICATION
     Dosage: APPLIED ON THURSDAYS AND FRIDAYS
     Route: 065

REACTIONS (7)
  - Pyrexia [Recovering/Resolving]
  - Back pain [Recovering/Resolving]
  - Plasma cell myeloma [Recovering/Resolving]
  - Infection [Recovering/Resolving]
  - Pneumonia [Recovering/Resolving]
  - Influenza like illness [Recovering/Resolving]
  - Transplant [Unknown]

NARRATIVE: CASE EVENT DATE: 2019
